FAERS Safety Report 8271279-3 (Version None)
Quarter: 2012Q2

REPORT INFORMATION
  Report Type: 
  Country: None (occurrence: None)
  Receive Date: 20120406
  Receipt Date: 20120326
  Transmission Date: 20120825
  Serious: Yes (Life-Threatening, Other)
  Sender: FDA-Public Use
  Company Number: JP-2011-11747

PATIENT
  Age: 58 Year
  Sex: Male
  Weight: 60 kg

DRUGS (8)
  1. CATACLOT (OZAGREL SODIUM) INJECTION [Suspect]
     Indication: CEREBRAL INFARCTION
     Dosage: 40 MG MILLIGRAM(S), BID, IV DRIP
     Route: 041
     Dates: start: 20110425, end: 20110429
  2. LOW MOLECULAR DEXTRAN (DEXTRAN 40) INJECTION [Concomitant]
  3. PLETAL [Suspect]
     Indication: CEREBRAL INFARCTION
     Dosage: 100 MG MILLIGRAM(S), BID, ORAL
     Route: 048
     Dates: start: 20110427, end: 20110427
  4. BLOPRESS (CANDESARTAN CILEXETIL) TABLET [Concomitant]
  5. ASPIRIN [Suspect]
     Dosage: , ORAL  100 MG MILLIGRAM(S), QD, ORAL
     Route: 048
     Dates: start: 20110401, end: 20110429
  6. ASPIRIN [Suspect]
     Dosage: , ORAL  100 MG MILLIGRAM(S), QD, ORAL
     Route: 048
     Dates: start: 20110415
  7. GASTER D (FAMOTIDINE) TABLET [Concomitant]
  8. MIYA BM (CLOSTRIDIUM BUTYRICUM) TABLET [Concomitant]

REACTIONS (9)
  - NAUSEA [None]
  - ALTERED STATE OF CONSCIOUSNESS [None]
  - VERTEBRAL ARTERY DISSECTION [None]
  - BLOOD PRESSURE SYSTOLIC INCREASED [None]
  - CONVULSION [None]
  - HEADACHE [None]
  - CEREBRAL HAEMORRHAGE [None]
  - SUBARACHNOID HAEMORRHAGE [None]
  - LACUNAR INFARCTION [None]
